FAERS Safety Report 7271562-4 (Version None)
Quarter: 2011Q1

REPORT INFORMATION
  Report Type: 
  Country: None (occurrence: None)
  Receive Date: 20110203
  Receipt Date: 20110119
  Transmission Date: 20110831
  Serious: Yes (Other)
  Sender: FDA-Public Use
  Company Number: GB-RANBAXY-2007RR-11983

PATIENT
  Age: 27 Year
  Sex: Male

DRUGS (12)
  1. METHYLENEDIOXYMETHAMPHETAMINE [Concomitant]
  2. ASPIRIN [Suspect]
     Route: 065
  3. LOFEPRAMINE [Suspect]
     Dosage: UNK
     Route: 065
  4. PAROXETINE HCL [Suspect]
     Indication: PHOBIA
     Dosage: 20 MG, QD
     Dates: start: 19990901, end: 20021201
  5. ALCOHOL [Suspect]
  6. FLUOXETINE [Concomitant]
     Indication: DEPRESSION
  7. CODEINE SULFATE [Suspect]
     Dosage: UNK
     Dates: start: 20020820
  8. COCAINE [Suspect]
     Dosage: UNK
     Dates: start: 20020801
  9. IBUPROFEN [Suspect]
     Dosage: UNK
     Route: 065
     Dates: start: 20020820
  10. LITHIUM [Concomitant]
  11. ANADIN IBUPROFEN [Suspect]
     Dosage: UNK
     Dates: start: 20020820, end: 20020820
  12. IBUPROFEN [Suspect]
     Dosage: UNK
     Dates: start: 20020820

REACTIONS (12)
  - VISION BLURRED [None]
  - OVERDOSE [None]
  - AGGRESSION [None]
  - CONSTIPATION [None]
  - SOCIAL PHOBIA [None]
  - SUICIDE ATTEMPT [None]
  - DRUG WITHDRAWAL SYNDROME [None]
  - DRY MOUTH [None]
  - INTENTIONAL OVERDOSE [None]
  - DEPRESSION [None]
  - SUICIDAL IDEATION [None]
  - SEXUAL DYSFUNCTION [None]
